FAERS Safety Report 6037475-0 (Version None)
Quarter: 2009Q1

REPORT INFORMATION
  Report Type: 
  Country: None (occurrence: None)
  Receive Date: 20090114
  Receipt Date: 20090105
  Transmission Date: 20090719
  Serious: Yes (Death)
  Sender: FDA-Public Use
  Company Number: US-PFIZER INC-2008152448

PATIENT
  Sex: Female
  Weight: 58.776 kg

DRUGS (8)
  1. SUNITINIB MALATE [Suspect]
     Indication: PANCREATIC NEUROENDOCRINE TUMOUR
     Dosage: 12.5 MG, 3X/DAY
     Route: 048
     Dates: start: 20071119
  2. OCTREOTIDE [Concomitant]
     Dosage: UNK
     Dates: start: 20061001
  3. NEXIUM [Concomitant]
     Dosage: UNK
     Route: 048
     Dates: start: 20070405
  4. VITAMIN B-12 [Concomitant]
     Dosage: UNK
     Route: 058
     Dates: start: 20061010
  5. DEMADEX [Concomitant]
     Dosage: UNK
     Route: 048
     Dates: start: 20071221
  6. ZANTAC [Concomitant]
     Dosage: UNK
     Route: 048
     Dates: start: 20071218
  7. CARVEDILOL [Concomitant]
     Dosage: UNK
     Route: 048
     Dates: start: 20080514
  8. CRESTOR [Concomitant]
     Dosage: UNK
     Route: 048
     Dates: start: 20080514

REACTIONS (1)
  - RENAL FAILURE ACUTE [None]
